FAERS Safety Report 6271217-9 (Version None)
Quarter: 2009Q3

REPORT INFORMATION
  Report Type: 
  Country: None (occurrence: None)
  Receive Date: 20090717
  Receipt Date: 20090706
  Transmission Date: 20100115
  Serious: Yes (Other)
  Sender: FDA-Public Use
  Company Number: US-WYE-H10063409

PATIENT

DRUGS (5)
  1. PROTONIX [Interacting]
     Dosage: UNKNOWN
     Dates: start: 20080101
  2. CLOPIDOGREL SULFATE [Interacting]
     Dosage: PRE-LOADING
     Dates: start: 20080101
  3. BIVALIRUDIN [Concomitant]
     Dosage: .75 MG/KG EVERY 1 TOT
     Route: 042
     Dates: start: 20080101, end: 20080101
  4. BIVALIRUDIN [Concomitant]
     Route: 042
     Dates: start: 20080101
  5. NEXIUM [Suspect]
     Dosage: UNKNOWN
     Dates: start: 20080101

REACTIONS (2)
  - DRUG INTERACTION [None]
  - STENT OCCLUSION [None]
